FAERS Safety Report 7177905-4 (Version None)
Quarter: 2010Q4

REPORT INFORMATION
  Report Type: 
  Country: None (occurrence: None)
  Receive Date: 20101220
  Receipt Date: 20101210
  Transmission Date: 20110411
  Serious: Yes (Hospitalization)
  Sender: FDA-Public Use
  Company Number: JP-EISAI INC.-E3810-04290-SPO-JP

PATIENT
  Age: 81 Year
  Sex: Female

DRUGS (2)
  1. PARIET (RABEPRAZOLE) [Suspect]
     Indication: REFLUX OESOPHAGITIS
     Route: 048
     Dates: start: 20101025, end: 20101118
  2. MICOMBI [Suspect]
     Dosage: UNKNOWN
     Route: 048
     Dates: start: 20101112, end: 20101120

REACTIONS (1)
  - HYPONATRAEMIA [None]
